FAERS Safety Report 21872605 (Version 1)
Quarter: 2023Q1

REPORT INFORMATION
  Report Type: Spontaneous
  Country: US (occurrence: US)
  Receive Date: 20230117
  Receipt Date: 20230117
  Transmission Date: 20230418
  Serious: Yes (Death, Hospitalization)
  Sender: FDA-Public Use
  Company Number: US-BAYER-2023A002796

PATIENT
  Age: 51 Year
  Sex: Female

DRUGS (2)
  1. ASPIRIN [Suspect]
     Active Substance: ASPIRIN
     Route: 048
  2. 2,4-DINITROPHENOL [Suspect]
     Active Substance: 2,4-DINITROPHENOL

REACTIONS (1)
  - Toxicity to various agents [Fatal]
